FAERS Safety Report 8005480-0 (Version None)
Quarter: 2011Q4

REPORT INFORMATION
  Report Type: 
  Country: None (occurrence: None)
  Receive Date: 20111123
  Receipt Date: 20111108
  Transmission Date: 20120403
  Serious: No
  Sender: FDA-Public Use
  Company Number: 335479

PATIENT
  Sex: Female

DRUGS (5)
  1. LISINOPRIL [Concomitant]
  2. PANTOPRAZOLE [Concomitant]
  3. MELOXICAM [Concomitant]
  4. VICTOZA [Suspect]
     Indication: TYPE 2 DIABETES MELLITUS
     Dosage: 1.2 MG, QD, SUBCUTANEOUS
     Route: 058
     Dates: start: 20101105
  5. METFORMIN HCL [Concomitant]

REACTIONS (2)
  - HYPOGLYCAEMIA [None]
  - URINARY TRACT INFECTION [None]
